FAERS Safety Report 20220242 (Version 1)
Quarter: 2021Q4

REPORT INFORMATION
  Report Type: Report from Study
  Country: CA (occurrence: CA)
  Receive Date: 20211223
  Receipt Date: 20211223
  Transmission Date: 20220303
  Serious: Yes (Other)
  Sender: FDA-Public Use
  Company Number: CA-ABBVIE-21K-028-4205402-00

PATIENT
  Sex: Female

DRUGS (1)
  1. HUMIRA [Suspect]
     Active Substance: ADALIMUMAB
     Indication: Crohn^s disease
     Route: 058
     Dates: start: 20160203, end: 20211115

REACTIONS (3)
  - Systemic lupus erythematosus [Unknown]
  - Skin disorder [Unknown]
  - Rash pruritic [Unknown]

NARRATIVE: CASE EVENT DATE: 20200101
